FAERS Safety Report 8098252-2 (Version None)
Quarter: 2012Q1

REPORT INFORMATION
  Report Type: 
  Country: None (occurrence: None)
  Receive Date: 20120128
  Receipt Date: 20110808
  Transmission Date: 20120608
  Serious: No
  Sender: FDA-Public Use
  Company Number: US-ABBOTT-11P-163-0844595-00

PATIENT
  Age: 36 Year
  Sex: Female

DRUGS (6)
  1. LISINOPRIL [Concomitant]
     Indication: HYPERTENSION
  2. AZATHIOPRINE [Concomitant]
     Indication: CROHN'S DISEASE
  3. HUMIRA [Suspect]
     Indication: CROHN'S DISEASE
     Dates: start: 20110601
  4. JOLESSA [Concomitant]
     Indication: CONTRACEPTION
     Dosage: GENERIC
  5. VITAMIN B COMPLEX CAP [Concomitant]
     Indication: PRODUCT USED FOR UNKNOWN INDICATION
  6. LEVOTHROID [Concomitant]
     Indication: HYPOTHYROIDISM

REACTIONS (3)
  - RASH [None]
  - RASH PRURITIC [None]
  - RASH ERYTHEMATOUS [None]
